FAERS Safety Report 14433853 (Version 3)
Quarter: 2019Q4

REPORT INFORMATION
  Report Type: Spontaneous
  Country: US (occurrence: US)
  Receive Date: 20180124
  Receipt Date: 20191011
  Transmission Date: 20200122
  Serious: Yes (Other)
  Sender: FDA-Public Use
  Company Number: US-ELI_LILLY_AND_COMPANY-US201801008793

PATIENT
  Sex: Male

DRUGS (1)
  1. CIALIS [Suspect]
     Active Substance: TADALAFIL
     Indication: ERECTILE DYSFUNCTION
     Dosage: 20 MG, WEEKLY (1/W)
     Route: 065
     Dates: start: 20111011, end: 20151215

REACTIONS (7)
  - Basal cell carcinoma [Recovered/Resolved]
  - Metastatic malignant melanoma [Unknown]
  - Irritable bowel syndrome [Recovering/Resolving]
  - Squamous cell carcinoma [Recovered/Resolved]
  - Actinic keratosis [Recovered/Resolved]
  - Carotid artery disease [Recovering/Resolving]
  - Malignant melanoma stage II [Unknown]

NARRATIVE: CASE EVENT DATE: 2012
